FAERS Safety Report 15616623 (Version 1)
Quarter: 2018Q4

REPORT INFORMATION
  Report Type: Spontaneous
  Country: US (occurrence: US)
  Receive Date: 20181114
  Receipt Date: 20181114
  Transmission Date: 20190205
  Serious: Yes (Other)
  Sender: FDA-Public Use
  Company Number: US-PFIZER INC-2018463274

PATIENT
  Age: 66 Year
  Sex: Female
  Weight: 46.72 kg

DRUGS (2)
  1. LYRICA [Suspect]
     Active Substance: PREGABALIN
     Indication: CERVICAL SPINAL STENOSIS
     Dosage: 50 MG, AS NEEDED [25MG 2 CAPSULES BY MOUTH 3 TIMES A DAY AS NEEDED]
     Route: 048
  2. LYRICA [Suspect]
     Active Substance: PREGABALIN
     Indication: CONNECTIVE TISSUE DISORDER
     Dosage: UNK UNK, AS NEEDED  [50MG 1 - 2 CAPSULE BY MOUTH IN THE MORNING AND AFTERNOON AS NEEDED]
     Route: 048

REACTIONS (13)
  - Pain [Recovering/Resolving]
  - Vision blurred [Recovering/Resolving]
  - Blood pressure fluctuation [Recovering/Resolving]
  - Nystagmus [Recovering/Resolving]
  - Product use issue [Unknown]
  - Apnoea [Recovering/Resolving]
  - Heart rate increased [Recovering/Resolving]
  - Tremor [Recovering/Resolving]
  - Autonomic nervous system imbalance [Recovering/Resolving]
  - Gait disturbance [Recovering/Resolving]
  - Blindness [Recovering/Resolving]
  - Extrapyramidal disorder [Recovering/Resolving]
  - Muscle spasticity [Recovering/Resolving]
